FAERS Safety Report 9216601 (Version 1)
Quarter: 2013Q2

REPORT INFORMATION
  Report Type: Spontaneous
  Country: IT (occurrence: None)
  Receive Date: 20130404
  Receipt Date: 20130404
  Transmission Date: 20140414
  Serious: No
  Sender: FDA-Public Use
  Company Number: 1303ITA011241

PATIENT
  Age: 20 Year
  Sex: Male

DRUGS (1)
  1. CEFTIBUTEN [Suspect]
     Indication: PYREXIA
     Route: 048
     Dates: start: 20121025, end: 20121027

REACTIONS (1)
  - Leukocytoclastic vasculitis [None]
